FAERS Safety Report 20591650 (Version 1)
Quarter: 2022Q1

REPORT INFORMATION
  Report Type: Spontaneous
  Country: LU (occurrence: LU)
  Receive Date: 20220314
  Receipt Date: 20220314
  Transmission Date: 20220423
  Serious: Yes (Life-Threatening, Hospitalization)
  Sender: FDA-Public Use
  Company Number: None

PATIENT
  Age: 0 Year
  Sex: Male
  Weight: 2 kg

DRUGS (12)
  1. CYCLOPHOSPHAMIDE [Suspect]
     Active Substance: CYCLOPHOSPHAMIDE
     Indication: Breast cancer
     Route: 064
     Dates: start: 20211001, end: 20211001
  2. CYCLOPHOSPHAMIDE [Suspect]
     Active Substance: CYCLOPHOSPHAMIDE
     Route: 064
     Dates: start: 20211111, end: 20211111
  3. CYCLOPHOSPHAMIDE [Suspect]
     Active Substance: CYCLOPHOSPHAMIDE
     Route: 064
     Dates: start: 20211014, end: 20211014
  4. CYCLOPHOSPHAMIDE [Suspect]
     Active Substance: CYCLOPHOSPHAMIDE
     Route: 064
     Dates: start: 20211028, end: 20211028
  5. EPIRUBICIN [Suspect]
     Active Substance: EPIRUBICIN
     Indication: Breast cancer
     Route: 064
     Dates: start: 20211001, end: 20211001
  6. EPIRUBICIN [Suspect]
     Active Substance: EPIRUBICIN
     Route: 064
     Dates: start: 20211028, end: 20211028
  7. EPIRUBICIN [Suspect]
     Active Substance: EPIRUBICIN
     Route: 064
     Dates: start: 20211014, end: 20211014
  8. EPIRUBICIN [Suspect]
     Active Substance: EPIRUBICIN
     Route: 064
     Dates: start: 20211111, end: 20211111
  9. TAXOL [Suspect]
     Active Substance: PACLITAXEL
     Indication: Breast cancer
     Route: 064
     Dates: start: 20211216, end: 20211216
  10. TAXOL [Suspect]
     Active Substance: PACLITAXEL
     Route: 064
     Dates: start: 20211209, end: 20211209
  11. TAXOL [Suspect]
     Active Substance: PACLITAXEL
     Route: 064
     Dates: start: 20211202, end: 20211202
  12. TAXOL [Suspect]
     Active Substance: PACLITAXEL
     Route: 064
     Dates: start: 20211223

REACTIONS (2)
  - Necrotising colitis [Recovered/Resolved]
  - Premature baby [Recovering/Resolving]

NARRATIVE: CASE EVENT DATE: 20210111
